FAERS Safety Report 10616403 (Version 1)
Quarter: 2014Q4

REPORT INFORMATION
  Report Type: Spontaneous
  Country: None (occurrence: None)
  Receive Date: 20141126
  Receipt Date: 20141126
  Transmission Date: 20150529
  Serious: Yes (Hospitalization)
  Sender: FDA-Public Use
  Company Number: None

PATIENT
  Age: 76 Year
  Sex: Female
  Weight: 68 kg

DRUGS (11)
  1. METFORMIN (GLUCOPHAGE) [Concomitant]
  2. FENOFIBRATE (LOFIBRA) [Concomitant]
  3. TERAZOSIN (HYTRIN) [Concomitant]
  4. HYDROCHLOROTHIAZIDE (ESIDRIX/HYDRODIURIL) [Concomitant]
  5. OMEPRAZOLE (PRILOSEC) [Concomitant]
  6. METOPROLOL TARTRATE (LOPRESSOR) [Concomitant]
  7. LINAGLIPTIN [Suspect]
     Active Substance: LINAGLIPTIN
     Indication: DIABETES MELLITUS
     Dosage: 1 PILL QD ORAL
     Route: 048
     Dates: start: 20140606, end: 20140620
  8. LOSARTAN (COZAAR) [Concomitant]
  9. LINAGLIPTIN (TRADJENTA) [Concomitant]
  10. POTASSIUM CHLORIDE (K-TAB) [Concomitant]
  11. SIMVASTATIN (ZOCOR) [Concomitant]

REACTIONS (7)
  - Arthralgia [None]
  - Abdominal pain upper [None]
  - Dizziness [None]
  - Dyspnoea [None]
  - Nausea [None]
  - Asthenia [None]
  - Fatigue [None]

NARRATIVE: CASE EVENT DATE: 20140620
